FAERS Safety Report 20661640 (Version 2)
Quarter: 2022Q2

REPORT INFORMATION
  Report Type: Spontaneous
  Country: JP (occurrence: JP)
  Receive Date: 20220401
  Receipt Date: 20220408
  Transmission Date: 20220720
  Serious: Yes (Death, Other)
  Sender: FDA-Public Use
  Company Number: JP-GALDERMA-JP2022003640

PATIENT

DRUGS (5)
  1. ROZEX (METRONIDAZOLE) [Suspect]
     Active Substance: METRONIDAZOLE
     Indication: Skin ulcer
     Dosage: 1 DOSAGE FORM
     Route: 061
     Dates: start: 20220212
  2. MOVICOL [Concomitant]
     Active Substance: POLYETHYLENE GLYCOL 3350\POTASSIUM CHLORIDE\SODIUM BICARBONATE\SODIUM CHLORIDE
     Indication: Product used for unknown indication
     Route: 048
  3. MAGNESIUM OXIDE [Concomitant]
     Active Substance: MAGNESIUM OXIDE
     Indication: Product used for unknown indication
     Route: 048
  4. CALONAL [Concomitant]
     Active Substance: ACETAMINOPHEN
     Indication: Product used for unknown indication
     Route: 048
  5. TRAMADOL HYDROCHLORIDE [Concomitant]
     Active Substance: TRAMADOL HYDROCHLORIDE
     Indication: Product used for unknown indication
     Route: 048

REACTIONS (2)
  - Multiple organ dysfunction syndrome [Fatal]
  - Marasmus [Fatal]

NARRATIVE: CASE EVENT DATE: 20220101
